FAERS Safety Report 7215372-2 (Version None)
Quarter: 2011Q1

REPORT INFORMATION
  Report Type: 
  Country: None (occurrence: None)
  Receive Date: 20110107
  Receipt Date: 20101119
  Transmission Date: 20110831
  Serious: Yes (Hospitalization, Other)
  Sender: FDA-Public Use
  Company Number: US-BAYER-201028493NA

PATIENT
  Sex: Female
  Weight: 142.86 kg

DRUGS (2)
  1. YAZ [Suspect]
     Indication: PRODUCT USED FOR UNKNOWN INDICATION
     Dosage: UNK UNK, UNK
     Route: 048
     Dates: start: 20090901, end: 20100501
  2. ANTIBIOTICS [Concomitant]
     Dosage: UNK UNK, PRN
     Dates: end: 19990101

REACTIONS (2)
  - PAIN [None]
  - CHOLECYSTECTOMY [None]
